FAERS Safety Report 10062216 (Version 2)
Quarter: 2014Q2

REPORT INFORMATION
  Report Type: Spontaneous
  Country: ES (occurrence: ES)
  Receive Date: 20140407
  Receipt Date: 20140502
  Transmission Date: 20141212
  Serious: Yes (Hospitalization)
  Sender: FDA-Public Use
  Company Number: ES-NOVOPROD-404919

PATIENT
  Sex: Male

DRUGS (3)
  1. VICTOZA [Suspect]
     Indication: DIABETES MELLITUS
     Dosage: 1.8 MG, QD
     Route: 058
     Dates: start: 201010, end: 201401
  2. LEVEMIR [Concomitant]
     Indication: DIABETES MELLITUS
     Dosage: 130 U, QD
     Route: 065
     Dates: start: 20110201
  3. METFORMIN [Concomitant]
     Indication: DIABETES MELLITUS
     Dosage: 2550 MG, QD
     Route: 048

REACTIONS (1)
  - Bile duct cancer [Not Recovered/Not Resolved]
